FAERS Safety Report 4525310-9 (Version None)
Quarter: 2004Q4

REPORT INFORMATION
  Report Type: 
  Country: None (occurrence: None)
  Receive Date: 20041116
  Receipt Date: 20040810
  Transmission Date: 20050328
  Serious: No
  Sender: FDA-Public Use
  Company Number: S04-USA-05745-01

PATIENT
  Age: 79 Year
  Sex: Female

DRUGS (2)
  1. NAMENDA [Suspect]
     Indication: MEMORY IMPAIRMENT
     Dosage: 5 MG QD; PO
     Route: 048
     Dates: start: 20040803, end: 20040803
  2. RISPERDAL [Concomitant]

REACTIONS (1)
  - SPEECH DISORDER [None]
